FAERS Safety Report 15327586 (Version 2)
Quarter: 2018Q3

REPORT INFORMATION
  Report Type: Report from Study
  Country: CA (occurrence: CA)
  Receive Date: 20180828
  Receipt Date: 20180912
  Transmission Date: 20181010
  Serious: Yes (Hospitalization, Other)
  Sender: FDA-Public Use
  Company Number: CA-SHIRE-CA201828494

PATIENT

DRUGS (6)
  1. TEDUGLUTIDE [Suspect]
     Active Substance: TEDUGLUTIDE
     Indication: SHORT-BOWEL SYNDROME
     Dosage: 4.76 MG, 1X/DAY:QD
     Route: 058
     Dates: start: 20180716
  2. MAGNESIUM [Concomitant]
     Active Substance: MAGNESIUM
     Indication: PRODUCT USED FOR UNKNOWN INDICATION
  3. COUMADIN [Concomitant]
     Active Substance: WARFARIN SODIUM
     Indication: PRODUCT USED FOR UNKNOWN INDICATION
     Dosage: 5 MG, 1X/DAY:QD
     Route: 048
  4. XARELTO [Concomitant]
     Active Substance: RIVAROXABAN
     Indication: THROMBOSIS
     Dosage: 10 MG, 2X/DAY:BID
     Route: 048
  5. TPN [Concomitant]
     Active Substance: AMINO ACIDS\DEXTROSE\ELECTROLYTES NOS\SOYBEAN OIL
     Indication: PRODUCT USED FOR UNKNOWN INDICATION
  6. HEPARIN LOCK [Concomitant]
     Indication: INTERNATIONAL NORMALISED RATIO FLUCTUATION
     Dosage: 10000 IU, 3X A WEEK
     Route: 065

REACTIONS (17)
  - Diarrhoea [Unknown]
  - Dyspepsia [Unknown]
  - Stoma complication [Unknown]
  - Blood magnesium decreased [Not Recovered/Not Resolved]
  - Hypertension [Unknown]
  - Decreased appetite [Not Recovered/Not Resolved]
  - Insomnia [Unknown]
  - Abdominal distension [Recovered/Resolved]
  - Muscle spasms [Unknown]
  - Chest pain [Unknown]
  - Weight fluctuation [Unknown]
  - Vomiting [Not Recovered/Not Resolved]
  - Wound infection [Unknown]
  - Flatulence [Recovered/Resolved]
  - International normalised ratio fluctuation [Not Recovered/Not Resolved]
  - Faecal volume increased [Unknown]
  - Nausea [Unknown]

NARRATIVE: CASE EVENT DATE: 20180726
